FAERS Safety Report 13668486 (Version 1)
Quarter: 2017Q2

REPORT INFORMATION
  Report Type: Spontaneous
  Country: BE (occurrence: BE)
  Receive Date: 20170620
  Receipt Date: 20170620
  Transmission Date: 20170830
  Serious: Yes (Hospitalization)
  Sender: FDA-Public Use
  Company Number: BE-AXELLIA-001115

PATIENT
  Age: 61 Year
  Sex: Male

DRUGS (1)
  1. COLISTIN [Suspect]
     Active Substance: COLISTIN
     Indication: SEPSIS
     Route: 042

REACTIONS (1)
  - Acute kidney injury [Recovered/Resolved]
